FAERS Safety Report 9741025 (Version 4)
Quarter: 2015Q1

REPORT INFORMATION
  Report Type: Spontaneous
  Country: JP (occurrence: JP)
  Receive Date: 20131209
  Receipt Date: 20150122
  Transmission Date: 20150721
  Serious: Yes (Death, Other)
  Sender: FDA-Public Use
  Company Number: JP-ALEXION PHARMACEUTICALS INC.-A201304041

PATIENT

DRUGS (1)
  1. SOLIRIS [Suspect]
     Active Substance: ECULIZUMAB
     Indication: HAEMOLYTIC URAEMIC SYNDROME
     Dosage: 900 MG, QW
     Route: 042
     Dates: start: 20131108, end: 20131122

REACTIONS (6)
  - Azotaemia [Fatal]
  - Cardiac arrest [Fatal]
  - Lymphoma [Fatal]
  - Condition aggravated [Fatal]
  - Bone lesion [Unknown]
  - Condition aggravated [Fatal]

NARRATIVE: CASE EVENT DATE: 20131124
